FAERS Safety Report 5284514-0 (Version None)
Quarter: 2007Q1

REPORT INFORMATION
  Report Type: 
  Country: None (occurrence: None)
  Receive Date: 20061226
  Receipt Date: 20060923
  Transmission Date: 20070707
  Serious: No
  Sender: FDA-Public Use
  Company Number: 2006PV021789

PATIENT
  Age: 41 Year
  Sex: Male
  Weight: 92.9874 kg

DRUGS (2)
  1. SYMLIN [Suspect]
     Indication: BLOOD TRIGLYCERIDES INCREASED
     Dosage: SEE IMAGE
     Route: 058
     Dates: start: 20060701, end: 20060101
  2. SYMLIN [Suspect]
     Indication: BLOOD TRIGLYCERIDES INCREASED
     Dosage: SEE IMAGE
     Route: 058
     Dates: start: 20060101

REACTIONS (2)
  - DRUG INEFFECTIVE FOR UNAPPROVED INDICATION [None]
  - INJECTION SITE PAIN [None]
